FAERS Safety Report 12652941 (Version 3)
Quarter: 2016Q3

REPORT INFORMATION
  Report Type: Spontaneous
  Country: US (occurrence: US)
  Receive Date: 20160815
  Receipt Date: 20160920
  Transmission Date: 20161109
  Serious: Yes (Other)
  Sender: FDA-Public Use
  Company Number: US-PFIZER INC-2016381275

PATIENT
  Age: 64 Year
  Sex: Female
  Weight: 78 kg

DRUGS (1)
  1. GABAPENTIN. [Suspect]
     Active Substance: GABAPENTIN
     Dosage: UNK

REACTIONS (16)
  - Feeling abnormal [Unknown]
  - Blood pressure increased [Unknown]
  - Insomnia [Unknown]
  - Impaired driving ability [Unknown]
  - Alopecia [Unknown]
  - Drug ineffective [Unknown]
  - Emotional disorder [Unknown]
  - Limb discomfort [Unknown]
  - Abasia [Unknown]
  - Musculoskeletal discomfort [Unknown]
  - Visual impairment [Unknown]
  - General physical health deterioration [Unknown]
  - Daydreaming [Unknown]
  - Groin pain [Unknown]
  - Pain [Unknown]
  - Weight abnormal [Unknown]
